FAERS Safety Report 9254950 (Version 1)
Quarter: 2013Q2

REPORT INFORMATION
  Report Type: Spontaneous
  Country: US (occurrence: US)
  Receive Date: 20130425
  Receipt Date: 20130425
  Transmission Date: 20140414
  Serious: No
  Sender: FDA-Public Use
  Company Number: US-B.I. PHARMACEUTICALS,INC./RIDGEFIELD-2013-BI-10619BP

PATIENT
  Age: 76 Year
  Sex: Female

DRUGS (1)
  1. MICARDIS HCT [Suspect]
     Indication: HYPERTENSION
     Route: 048
     Dates: start: 2008, end: 201212

REACTIONS (3)
  - Blood pressure increased [Not Recovered/Not Resolved]
  - Palpitations [Recovered/Resolved]
  - Cataract [Not Recovered/Not Resolved]
